FAERS Safety Report 19689699 (Version 1)
Quarter: 2021Q3

REPORT INFORMATION
  Report Type: Report from Study
  Country: None (occurrence: US)
  Receive Date: 20210812
  Receipt Date: 20210812
  Transmission Date: 20211014
  Serious: Yes (Other)
  Sender: FDA-Public Use
  Company Number: US-ABBVIE-21K-163-4033033-00

PATIENT
  Sex: Female

DRUGS (1)
  1. IMBRUVICA [Suspect]
     Active Substance: IBRUTINIB
     Indication: WALDENSTROM^S MACROGLOBULINAEMIA
     Route: 048
     Dates: start: 20210212

REACTIONS (10)
  - Deafness [Unknown]
  - Viral infection [Unknown]
  - Myocardial infarction [Unknown]
  - Osteopenia [Unknown]
  - Insomnia [Unknown]
  - Cerebrovascular accident [Unknown]
  - Arthritis [Unknown]
  - Vertigo [Unknown]
  - Fatigue [Unknown]
  - Mastoiditis [Unknown]

NARRATIVE: CASE EVENT DATE: 2021
